FAERS Safety Report 18423033 (Version 9)
Quarter: 2023Q1

REPORT INFORMATION
  Report Type: Spontaneous
  Country: GB (occurrence: GB)
  Receive Date: 20201023
  Receipt Date: 20230217
  Transmission Date: 20230418
  Serious: Yes (Life-Threatening, Hospitalization, Other)
  Sender: FDA-Public Use
  Company Number: GB-EMA-DD-20201013-SHAIK I-134529

PATIENT
  Age: 29 Year
  Sex: Male

DRUGS (16)
  1. CLOBAZAM [Suspect]
     Active Substance: CLOBAZAM
     Indication: Temporal lobe epilepsy
     Dosage: UNK UNK, BID
     Route: 048
     Dates: end: 20200822
  2. CLOBAZAM [Suspect]
     Active Substance: CLOBAZAM
     Indication: Partial seizures
     Dosage: 1 DF, TOTAL10 MG AM. AND 20 MG PM
     Route: 048
     Dates: start: 20200823, end: 20200823
  3. CLOBAZAM [Suspect]
     Active Substance: CLOBAZAM
     Dosage: 10 MG
     Route: 048
     Dates: end: 20200822
  4. METHYLPREDNISOLONE [Suspect]
     Active Substance: METHYLPREDNISOLONE
     Indication: Autoimmune disorder
     Dosage: 500 MG, QD
     Route: 042
     Dates: start: 20200820, end: 202008
  5. METHYLPREDNISOLONE [Suspect]
     Active Substance: METHYLPREDNISOLONE
     Indication: Partial seizures
  6. FYCOMPA [Suspect]
     Active Substance: PERAMPANEL
     Indication: Temporal lobe epilepsy
     Dosage: 2 MG, QD
     Route: 048
     Dates: start: 20200128, end: 202005
  7. FYCOMPA [Suspect]
     Active Substance: PERAMPANEL
     Indication: Partial seizures
     Dosage: 4 MG, QD
     Route: 048
     Dates: start: 202005, end: 202006
  8. FYCOMPA [Suspect]
     Active Substance: PERAMPANEL
     Dosage: 8 MG, QD
     Route: 048
     Dates: start: 202006, end: 202007
  9. FYCOMPA [Suspect]
     Active Substance: PERAMPANEL
     Dosage: 6 MG, QD
     Route: 048
     Dates: start: 202007, end: 20200822
  10. FYCOMPA [Suspect]
     Active Substance: PERAMPANEL
     Dosage: 1 DF, TOTAL (UNKNOWN DOSE)
     Route: 048
     Dates: start: 20200823, end: 20200823
  11. BRIVARACETAM [Suspect]
     Active Substance: BRIVARACETAM
     Indication: Temporal lobe epilepsy
     Dosage: 100 MG, BID
     Route: 065
  12. BRIVARACETAM [Suspect]
     Active Substance: BRIVARACETAM
     Indication: Partial seizures
  13. PERAMPANEL [Suspect]
     Active Substance: PERAMPANEL
     Indication: Epilepsy
     Dosage: 6 MG, QD
     Route: 048
     Dates: start: 20200128, end: 20200823
  14. PREDNISOLONE [Concomitant]
     Active Substance: PREDNISOLONE
     Indication: Partial seizures
     Dosage: UNK
     Route: 065
  15. ESLICARBAZEPINE [Concomitant]
     Active Substance: ESLICARBAZEPINE
     Indication: Temporal lobe epilepsy
     Dosage: BID (400 MG IN AM, 800 MG IN PM)
     Route: 065
  16. ESLICARBAZEPINE [Concomitant]
     Active Substance: ESLICARBAZEPINE
     Indication: Partial seizures

REACTIONS (13)
  - Mental disorder [Recovering/Resolving]
  - Suicide attempt [Recovered/Resolved]
  - Suicidal ideation [Recovered/Resolved with Sequelae]
  - Psychotic disorder [Recovered/Resolved]
  - Suicidal ideation [Recovering/Resolving]
  - Depressed level of consciousness [Recovered/Resolved]
  - Somnolence [Recovering/Resolving]
  - Anger [Recovered/Resolved]
  - Abnormal behaviour [Recovering/Resolving]
  - Memory impairment [Recovered/Resolved]
  - Hallucination, auditory [Recovering/Resolving]
  - Intentional overdose [Recovered/Resolved]
  - Hallucination [Recovering/Resolving]

NARRATIVE: CASE EVENT DATE: 20200501
